FAERS Safety Report 20485727 (Version 2)
Quarter: 2022Q1

REPORT INFORMATION
  Report Type: Spontaneous
  Country: BR (occurrence: BR)
  Receive Date: 20220217
  Receipt Date: 20220323
  Transmission Date: 20220423
  Serious: Yes (Life-Threatening, Congenital Anomaly)
  Sender: FDA-Public Use
  Company Number: BR-BIOMARINAP-BR-2022-141550

PATIENT
  Age: 13 Year
  Sex: Male
  Weight: 22.5 kg

DRUGS (3)
  1. NAGLAZYME [Suspect]
     Active Substance: GALSULFASE
     Indication: Mucopolysaccharidosis VI
     Dosage: UNK, QW
     Route: 042
     Dates: start: 201001
  2. AMOXICILLIN [Concomitant]
     Active Substance: AMOXICILLIN
     Indication: Product used for unknown indication
     Route: 065
  3. PREDNISOLONE [Concomitant]
     Active Substance: PREDNISOLONE
     Indication: Product used for unknown indication
     Route: 065

REACTIONS (3)
  - Dust allergy [Recovered/Resolved]
  - Sinusitis [Recovered/Resolved]
  - Breath sounds [Recovered/Resolved]

NARRATIVE: CASE EVENT DATE: 20211001
